FAERS Safety Report 13851446 (Version 1)
Quarter: 2017Q3

REPORT INFORMATION
  Report Type: Spontaneous
  Country: FR (occurrence: FR)
  Receive Date: 20170809
  Receipt Date: 20170809
  Transmission Date: 20171127
  Serious: Yes (Death, Hospitalization)
  Sender: FDA-Public Use
  Company Number: FR-ACTELION-A-CH2017-157411

PATIENT
  Age: 73 Year
  Sex: Male

DRUGS (5)
  1. TRACLEER [Concomitant]
     Active Substance: BOSENTAN
  2. UPTRAVI [Suspect]
     Active Substance: SELEXIPAG
     Dosage: 1000 MCG, BID
     Route: 048
     Dates: start: 20170125
  3. ADCIRCA [Concomitant]
     Active Substance: TADALAFIL
  4. TRACLEER [Concomitant]
     Active Substance: BOSENTAN
  5. UPTRAVI [Suspect]
     Active Substance: SELEXIPAG
     Indication: PULMONARY ARTERIAL HYPERTENSION
     Dosage: 200 MCG, BID
     Route: 048
     Dates: start: 20161124

REACTIONS (4)
  - Pulmonary arterial hypertension [Fatal]
  - Condition aggravated [Fatal]
  - Femoral neck fracture [Unknown]
  - Fall [Unknown]
